FAERS Safety Report 6752261-1 (Version None)
Quarter: 2010Q2

REPORT INFORMATION
  Report Type: 
  Country: None (occurrence: None)
  Receive Date: 20100602
  Receipt Date: 20100520
  Transmission Date: 20101027
  Serious: Yes (Other)
  Sender: FDA-Public Use
  Company Number: NL-PFIZER INC-2008152938

PATIENT
  Age: 53 Year
  Sex: Male

DRUGS (3)
  1. SERTRALINE HCL [Suspect]
     Indication: DEPRESSION
     Dosage: 100 MG, 1X/DAY
  2. NAPROXEN [Suspect]
     Dosage: 500 MG, 2X/DAY
  3. CODEINE PHOSPHATE AND ACETAMINOPHEN [Concomitant]

REACTIONS (5)
  - DYSPNOEA [None]
  - HAEMATOMA [None]
  - LIP AND/OR ORAL CAVITY CANCER [None]
  - POST PROCEDURAL HAEMORRHAGE [None]
  - UPPER AIRWAY OBSTRUCTION [None]
